FAERS Safety Report 5378738-1 (Version None)
Quarter: 2007Q3

REPORT INFORMATION
  Report Type: 
  Country: None (occurrence: None)
  Receive Date: 20070705
  Receipt Date: 20070703
  Transmission Date: 20080115
  Serious: Yes (Other)
  Sender: FDA-Public Use
  Company Number: B0476932A

PATIENT
  Age: 6 Month
  Sex: Female

DRUGS (1)
  1. CLAVULIN [Suspect]
     Indication: DRUG USE FOR UNKNOWN INDICATION
     Dosage: 2ML THREE TIMES PER DAY
     Route: 065
     Dates: start: 20070623, end: 20070626

REACTIONS (4)
  - DIARRHOEA [None]
  - EXPIRED DRUG ADMINISTERED [None]
  - IMPAIRED HEALING [None]
  - RESTLESSNESS [None]
